FAERS Safety Report 23861473 (Version 7)
Quarter: 2025Q4

REPORT INFORMATION
  Report Type: Report from Study
  Country: CA (occurrence: CA)
  Receive Date: 20240516
  Receipt Date: 20251006
  Transmission Date: 20260118
  Serious: Yes (Other)
  Sender: TAKEDA
  Company Number: CA-TAKEDA-2024TUS026149

PATIENT
  Age: 35 Year
  Sex: Female
  Weight: 46.3 kg

DRUGS (9)
  1. VEDOLIZUMAB [Suspect]
     Active Substance: VEDOLIZUMAB
     Indication: Crohn^s disease
     Dosage: 300 MILLIGRAM
  2. VEDOLIZUMAB [Suspect]
     Active Substance: VEDOLIZUMAB
     Dosage: 300 MILLIGRAM
  3. VEDOLIZUMAB [Suspect]
     Active Substance: VEDOLIZUMAB
     Dosage: 300 MILLIGRAM
  4. VEDOLIZUMAB [Suspect]
     Active Substance: VEDOLIZUMAB
     Dosage: 300 MILLIGRAM
  5. VENTOLIN [Concomitant]
     Active Substance: ALBUTEROL SULFATE
     Dosage: UNK
  6. IRON [Concomitant]
     Active Substance: IRON
     Dosage: UNK UNK, QD
  7. PREDNISONE [Concomitant]
     Active Substance: PREDNISONE
     Dosage: UNK
  8. IMURAN [Concomitant]
     Active Substance: AZATHIOPRINE
     Dosage: UNK
  9. CLONAZEPAM [Concomitant]
     Active Substance: CLONAZEPAM
     Dosage: 2 MILLIGRAM

REACTIONS (12)
  - Blood pressure decreased [Recovered/Resolved]
  - Lower respiratory tract infection [Unknown]
  - Tinnitus [Recovered/Resolved]
  - Anxiety [Recovered/Resolved]
  - Haemorrhage in pregnancy [Unknown]
  - Dizziness [Recovered/Resolved]
  - Influenza like illness [Unknown]
  - Nausea [Unknown]
  - Fatigue [Unknown]
  - Headache [Unknown]
  - Pregnancy [Recovered/Resolved]
  - Maternal exposure during breast feeding [Unknown]
